FAERS Safety Report 17537091 (Version 1)
Quarter: 2020Q1

REPORT INFORMATION
  Report Type: Spontaneous
  Country: US (occurrence: US)
  Receive Date: 20200313
  Receipt Date: 20200313
  Transmission Date: 20200409
  Serious: Yes (Other)
  Sender: FDA-Public Use
  Company Number: US-GLAXOSMITHKLINE-US2020AMR043307

PATIENT

DRUGS (1)
  1. ALBUTEROL SULFATE. [Suspect]
     Active Substance: ALBUTEROL SULFATE
     Indication: ASTHMA
     Dosage: UNK
     Route: 065

REACTIONS (6)
  - Bronchitis bacterial [Unknown]
  - Cough [Unknown]
  - Product use in unapproved indication [Unknown]
  - Burning sensation [Unknown]
  - Asthma [Unknown]
  - Lung disorder [Unknown]
